FAERS Safety Report 7315491-6 (Version None)
Quarter: 2011Q1

REPORT INFORMATION
  Report Type: 
  Country: None (occurrence: None)
  Receive Date: 20110218
  Receipt Date: 20110218
  Transmission Date: 20110831
  Serious: Yes (Hospitalization)
  Sender: FDA-Public Use
  Company Number: None

PATIENT
  Age: 87 Year
  Sex: Female
  Weight: 73.7 kg

DRUGS (12)
  1. METOPROLOL [Concomitant]
  2. FLEXERIL [Concomitant]
  3. LASIX [Concomitant]
  4. GLIPIZIDE [Concomitant]
  5. PROTONIX [Concomitant]
  6. NORCO [Concomitant]
  7. COUMADIN [Suspect]
     Indication: DEEP VEIN THROMBOSIS
     Dosage: DAILY ORAL RECENT X2 MOS
     Route: 048
  8. AMLODIPINE [Concomitant]
  9. PREDNISONE [Concomitant]
  10. VIT D3 [Concomitant]
  11. CALCITRIOL [Concomitant]
  12. TYLENOL (CAPLET) [Concomitant]

REACTIONS (7)
  - COAGULOPATHY [None]
  - HAEMORRHAGIC ANAEMIA [None]
  - GASTROINTESTINAL HAEMORRHAGE [None]
  - GASTRITIS [None]
  - INTERNATIONAL NORMALISED RATIO INCREASED [None]
  - DIVERTICULUM INTESTINAL [None]
  - RENAL FAILURE ACUTE [None]
